FAERS Safety Report 5635921-5 (Version None)
Quarter: 2008Q1

REPORT INFORMATION
  Report Type: 
  Country: None (occurrence: None)
  Receive Date: 20080219
  Receipt Date: 20071207
  Transmission Date: 20080703
  Serious: Yes (Death, Hospitalization, Other)
  Sender: FDA-Public Use
  Company Number: MK-6028167

PATIENT
  Age: 14 Year
  Sex: Female

DRUGS (15)
  1. LOVAN (FLUOXETINE HYDROCHLORIDE) (20 MG) [Suspect]
     Indication: DEPRESSION
     Dosage: 20 MG; DAILY; ORAL, 40 MG; DAILY; ORAL
     Route: 048
     Dates: start: 20040611, end: 20040625
  2. LOVAN (FLUOXETINE HYDROCHLORIDE) (20 MG) [Suspect]
     Indication: DEPRESSION
     Dosage: 20 MG; DAILY; ORAL, 40 MG; DAILY; ORAL
     Route: 048
     Dates: start: 20040515
  3. ENDEP (AMITRIPTYLINE HYDROCHLORIDE) (10 MG) [Suspect]
     Indication: INSOMNIA
     Dosage: 10 MG; AT BEDTIME; ORAL
     Route: 048
     Dates: start: 20040625
  4. ZYPREXA [Suspect]
     Indication: AGITATION
     Dosage: 2.5 MG; DAILY; ORAL
     Route: 048
     Dates: start: 20040826, end: 20040101
  5. EFFEXOR [Suspect]
     Indication: DEPRESSION
     Dosage: 75 MG; DAILY; ORAL, 150 MG; DAILY;
     Route: 048
     Dates: start: 20040812, end: 20040924
  6. EFFEXOR [Suspect]
     Indication: DEPRESSION
     Dosage: 75 MG; DAILY; ORAL, 150 MG; DAILY;
     Route: 048
     Dates: start: 20040925, end: 20041007
  7. STILNOX /00914901/ [Concomitant]
  8. CANNABIS [Concomitant]
  9. DIANE-35 [Concomitant]
  10. TETREX /00001701/ [Concomitant]
  11. DOXYCYCLINE [Concomitant]
  12. AKAMIN /00232402/ [Concomitant]
  13. ETDH - PRESUMED ETOH (ALCOHOL) [Concomitant]
  14. RITALIN [Concomitant]
  15. SPEED [Concomitant]

REACTIONS (28)
  - ABNORMAL BEHAVIOUR [None]
  - ADJUSTMENT DISORDER [None]
  - AGGRESSION [None]
  - AGITATION [None]
  - ANGER [None]
  - ANXIETY [None]
  - ASPHYXIA [None]
  - COGNITIVE DISORDER [None]
  - COMPLETED SUICIDE [None]
  - CONTUSION [None]
  - DEPRESSION [None]
  - DRUG INEFFECTIVE [None]
  - HYPOXIC ENCEPHALOPATHY [None]
  - INFLUENZA LIKE ILLNESS [None]
  - INSOMNIA [None]
  - INTENTIONAL OVERDOSE [None]
  - INTENTIONAL SELF-INJURY [None]
  - REFUSAL OF TREATMENT BY PATIENT [None]
  - SELF INJURIOUS BEHAVIOUR [None]
  - SELF-INJURIOUS IDEATION [None]
  - SKIN LACERATION [None]
  - SLEEP DISORDER [None]
  - SOMNOLENCE [None]
  - SUICIDAL BEHAVIOUR [None]
  - SUICIDAL IDEATION [None]
  - SUICIDE ATTEMPT [None]
  - TREATMENT NONCOMPLIANCE [None]
  - TREMOR [None]
